FAERS Safety Report 9103417 (Version 1)
Quarter: 2013Q1

REPORT INFORMATION
  Report Type: Spontaneous
  Country: US (occurrence: US)
  Receive Date: 20130219
  Receipt Date: 20130219
  Transmission Date: 20140127
  Serious: Yes (Other)
  Sender: FDA-Public Use
  Company Number: US-PFIZER INC-2013012550

PATIENT
  Age: 72 Year
  Sex: Female
  Weight: 61 kg

DRUGS (2)
  1. PREMARIN VAGINAL CREAM [Suspect]
     Indication: VULVOVAGINAL DRYNESS
     Dosage: 1 G, 2X/WEEK
     Route: 067
  2. VASOTEC [Concomitant]
     Indication: HYPERTENSION
     Dosage: 10 MG, 2X/DAY

REACTIONS (3)
  - Thyroid disorder [Not Recovered/Not Resolved]
  - Blood cholesterol increased [Not Recovered/Not Resolved]
  - Blood potassium increased [Not Recovered/Not Resolved]
